FAERS Safety Report 13011769 (Version 1)
Quarter: 2016Q4

REPORT INFORMATION
  Report Type: Spontaneous
  Country: GB (occurrence: GB)
  Receive Date: 20161209
  Receipt Date: 20161209
  Transmission Date: 20170207
  Serious: Yes (Life-Threatening, Hospitalization)
  Sender: FDA-Public Use
  Company Number: GB-ROCHE-1865578

PATIENT
  Age: 65 Year
  Sex: Male
  Weight: 126.7 kg

DRUGS (1)
  1. ACTILYSE [Suspect]
     Active Substance: ALTEPLASE
     Indication: CEREBROVASCULAR ACCIDENT
     Route: 042
     Dates: start: 20161120, end: 20161120

REACTIONS (3)
  - Enlarged uvula [Recovering/Resolving]
  - Mouth swelling [Recovering/Resolving]
  - Vocal cord inflammation [Recovering/Resolving]

NARRATIVE: CASE EVENT DATE: 20161120
